FAERS Safety Report 11099702 (Version 1)
Quarter: 2015Q2

REPORT INFORMATION
  Report Type: Spontaneous
  Country: JP (occurrence: JP)
  Receive Date: 20150508
  Receipt Date: 20150508
  Transmission Date: 20150821
  Serious: Yes (Hospitalization)
  Sender: FDA-Public Use
  Company Number: JP-SA-2015SA009523

PATIENT
  Age: 80 Year
  Sex: Female
  Weight: 51 kg

DRUGS (10)
  1. ELPLAT [Suspect]
     Active Substance: OXALIPLATIN
     Indication: COLON CANCER
     Route: 041
     Dates: start: 20130213, end: 20130213
  2. ELPLAT [Suspect]
     Active Substance: OXALIPLATIN
     Indication: COLON CANCER
     Route: 041
     Dates: start: 20130308, end: 20130308
  3. MYSLEE [Concomitant]
     Active Substance: ZOLPIDEM TARTRATE
     Dates: start: 201302
  4. HERBAL EXTRACT NOS [Concomitant]
     Active Substance: HERBALS
     Dates: start: 201302
  5. MAGLAX [Concomitant]
     Active Substance: MAGNESIUM OXIDE
     Dates: start: 201302
  6. TS-1 [Concomitant]
     Active Substance: GIMERACIL\OTERACIL\TEGAFUR
     Dates: start: 20130213, end: 20130606
  7. MARZULENE S [Concomitant]
     Active Substance: GLUTAMINE\SODIUM GUALENATE
     Dosage: GRANULE
     Dates: start: 201302
  8. ELPLAT [Suspect]
     Active Substance: OXALIPLATIN
     Indication: COLON CANCER
     Route: 041
     Dates: start: 20130405, end: 20130405
  9. GASMOTIN [Concomitant]
     Active Substance: MOSAPRIDE CITRATE
     Dates: start: 201302
  10. ACINON [Concomitant]
     Active Substance: NIZATIDINE
     Dates: start: 201302

REACTIONS (5)
  - Splenomegaly [Recovering/Resolving]
  - Portal vein thrombosis [Recovering/Resolving]
  - Oesophageal varices haemorrhage [Recovered/Resolved]
  - Portal hypertension [Recovering/Resolving]
  - Malaise [Unknown]

NARRATIVE: CASE EVENT DATE: 2013
